FAERS Safety Report 7002012-0 (Version None)
Quarter: 2010Q3

REPORT INFORMATION
  Report Type: 
  Country: None (occurrence: None)
  Receive Date: 20100920
  Receipt Date: 20100908
  Transmission Date: 20110219
  Serious: Yes (Other)
  Sender: FDA-Public Use
  Company Number: B0675190A

PATIENT
  Sex: Female

DRUGS (3)
  1. SUMATRIPTAN SUCCINATE [Suspect]
     Indication: MIGRAINE
     Route: 045
  2. NORVASC [Concomitant]
     Indication: HYPERTENSION
     Route: 048
     Dates: start: 20090812
  3. KETESSE [Concomitant]
     Indication: MIGRAINE
     Route: 048
     Dates: start: 20090101

REACTIONS (2)
  - DIPLOPIA [None]
  - PARESIS CRANIAL NERVE [None]
